FAERS Safety Report 5953995-9 (Version None)
Quarter: 2008Q4

REPORT INFORMATION
  Report Type: 
  Country: None (occurrence: None)
  Receive Date: 20081114
  Receipt Date: 20081104
  Transmission Date: 20090506
  Serious: Yes (Other)
  Sender: FDA-Public Use
  Company Number: JP-PFIZER INC-2008093897

PATIENT
  Age: 76 Year
  Sex: Male

DRUGS (4)
  1. CARDENALIN [Suspect]
     Route: 048
     Dates: start: 20041218
  2. ADALAT CC [Concomitant]
     Route: 048
  3. BLOPRESS [Concomitant]
     Route: 048
  4. LANSOPRAZOLE [Concomitant]
     Route: 048

REACTIONS (1)
  - HAEMATOMA [None]
